FAERS Safety Report 5839390-1 (Version None)
Quarter: 2008Q3

REPORT INFORMATION
  Report Type: 
  Country: None (occurrence: None)
  Receive Date: 20080806
  Receipt Date: 20080724
  Transmission Date: 20090109
  Serious: Yes (Other)
  Sender: FDA-Public Use
  Company Number: 2005JP002006

PATIENT
  Age: 4 Year
  Sex: Female
  Weight: 17 kg

DRUGS (11)
  1. PROTOPIC [Suspect]
     Indication: DERMATITIS ATOPIC
     Dosage: 0.03 %, TOPICAL
     Route: 061
     Dates: start: 20050311, end: 20050907
  2. PROTOPIC [Suspect]
     Indication: DERMATITIS ATOPIC
     Dosage: 0.03 %, TOPICAL
     Route: 061
     Dates: end: 20071127
  3. HIRUDOID (HEPARINOID) OINTMENT [Concomitant]
  4. HIRUDOID (HEPARINOIN) LOTION [Concomitant]
  5. ANDERM OINTMENT [Concomitant]
  6. LOCOID [Concomitant]
  7. PALDES (CLOBETASONE BUTYRATE) CREAM [Concomitant]
  8. ALESION (EPINASTINE HYDROCHLORIDE) [Concomitant]
  9. AZUNOL (AZULENE SODIUM SULFONATE) OINTMENT [Concomitant]
  10. PREDONINE (PREDNISOLONE) EYE OINTMENT [Concomitant]
  11. LIDOMEX             (PREDNISOLONE VALEROACETATE) OINTMENT [Concomitant]

REACTIONS (5)
  - APPLICATION SITE REACTION [None]
  - CONDITION AGGRAVATED [None]
  - KAPOSI'S VARICELLIFORM ERUPTION [None]
  - NASOPHARYNGITIS [None]
  - TONSILLITIS [None]
